FAERS Safety Report 4394981-2 (Version None)
Quarter: 2004Q3

REPORT INFORMATION
  Report Type: 
  Country: None (occurrence: None)
  Receive Date: 20040706
  Receipt Date: 20040624
  Transmission Date: 20050211
  Serious: Yes (Other)
  Sender: FDA-Public Use
  Company Number: 2004040669

PATIENT
  Age: 65 Year
  Sex: Male

DRUGS (3)
  1. VIAGRA [Suspect]
     Indication: ILL-DEFINED DISORDER
     Dosage: AS NEEDED, ORAL
     Route: 048
  2. VALSARTAN (VALSARTAN) [Concomitant]
  3. WARFARIN SODIUM [Concomitant]

REACTIONS (4)
  - COLLAGEN DISORDER [None]
  - HAEMORRHAGE [None]
  - HAEMORRHAGE SUBCUTANEOUS [None]
  - THROMBOCYTOPENIA [None]
